FAERS Safety Report 18717240 (Version 1)
Quarter: 2021Q1

REPORT INFORMATION
  Report Type: Spontaneous
  Country: GB (occurrence: GB)
  Receive Date: 20210108
  Receipt Date: 20210108
  Transmission Date: 20210419
  Serious: Yes (Other)
  Sender: FDA-Public Use
  Company Number: GB-TORRENT-00024725

PATIENT
  Age: 21 Year
  Sex: Female
  Weight: 61 kg

DRUGS (2)
  1. VENLAFAXINE HYDROCHLORIDE. [Suspect]
     Active Substance: VENLAFAXINE HYDROCHLORIDE
     Indication: DEPRESSION SUICIDAL
     Dosage: 75
     Route: 048
     Dates: start: 20201019
  2. PROPRANOLOL HYDROCHLORIDE. [Concomitant]
     Active Substance: PROPRANOLOL HYDROCHLORIDE
     Indication: PRODUCT USED FOR UNKNOWN INDICATION

REACTIONS (1)
  - Decreased appetite [Recovered/Resolved with Sequelae]

NARRATIVE: CASE EVENT DATE: 20201020
